FAERS Safety Report 25907180 (Version 1)
Quarter: 2025Q4

REPORT INFORMATION
  Report Type: Report from Study
  Country: EU (occurrence: EU)
  Receive Date: 20251010
  Receipt Date: 20251010
  Transmission Date: 20260119
  Serious: Yes (Other)
  Sender: EMD SERONO INC
  Company Number: EU-Merck Healthcare KGaA-2025050578

PATIENT
  Age: 47 Year
  Sex: Female

DRUGS (4)
  1. MAVENCLAD [Suspect]
     Active Substance: CLADRIBINE
     Indication: Relapsing-remitting multiple sclerosis
     Dosage: YEAR ONE WEEK ONE THERAPY AT A DOSE OF TWO TABLETS ON DAYS 1 TO 5
     Dates: start: 20240812
  2. MAVENCLAD [Suspect]
     Active Substance: CLADRIBINE
     Dosage: YEAR 1 WEEK 5 THERAPY AT A DOSE OF 2 TABLETS ON DAYS 1 TO 4 AND 1 TABLET ON DAY 5
     Dates: start: 20240909
  3. MAVENCLAD [Suspect]
     Active Substance: CLADRIBINE
     Dosage: YEAR TWO WEEK ONE THERAPY AT A DOSE OF TWO TABLETS ON DAYS 1 TO 5
     Dates: start: 20250825
  4. MAVENCLAD [Suspect]
     Active Substance: CLADRIBINE
     Dosage: YEAR TWO WEEK FIVE THERAPY AT A DOSE OF TWO TABLETS ON DAYS 1 TO 5
     Dates: start: 20250922

REACTIONS (2)
  - White blood cell count decreased [Unknown]
  - Back pain [Unknown]

NARRATIVE: CASE EVENT DATE: 20250901
